FAERS Safety Report 12680187 (Version 1)
Quarter: 2016Q3

REPORT INFORMATION
  Report Type: Spontaneous
  Country: US (occurrence: US)
  Receive Date: 20160824
  Receipt Date: 20160824
  Transmission Date: 20161109
  Serious: Yes (Other)
  Sender: FDA-Public Use
  Company Number: US-ASTELLAS-2016US032473

PATIENT
  Age: 71 Year
  Sex: Female

DRUGS (1)
  1. PROGRAF [Suspect]
     Active Substance: TACROLIMUS\TACROLIMUS ANHYDROUS
     Indication: RENAL TRANSPLANT
     Dosage: 7 MG DAILY (4 MG AM AND 3 MG PM)
     Route: 048
     Dates: start: 20060705, end: 20160818

REACTIONS (2)
  - Drug ineffective [Unknown]
  - Dialysis [Unknown]

NARRATIVE: CASE EVENT DATE: 20160701
